FAERS Safety Report 7860450 (Version 6)
Quarter: 2013Q1

REPORT INFORMATION
  Report Type: Spontaneous
  Country: US (occurrence: US)
  Receive Date: 20110317
  Receipt Date: 20130104
  Transmission Date: 20140127
  Serious: Yes (Hospitalization, Other)
  Sender: FDA-Public Use
  Company Number: US-009507513-1103USA01430

PATIENT
  Sex: 0

DRUGS (13)
  1. FOSAMAX [Suspect]
     Indication: OSTEOPOROSIS
     Dosage: 70 MG, QW
     Route: 048
     Dates: start: 20030121
  2. FOSAMAX [Suspect]
     Dosage: UNK
     Route: 048
     Dates: start: 1998
  3. FOSAMAX [Suspect]
     Dosage: 70 MG, QD
     Route: 048
  4. ALENDRONATE SODIUM [Suspect]
     Indication: OSTEOPOROSIS
     Dosage: 70 MG, UNK
     Route: 048
     Dates: start: 20080428
  5. ALENDRONATE SODIUM [Suspect]
     Dosage: 70 ORAL
     Route: 048
     Dates: start: 20090930
  6. ALENDRONATE SODIUM [Suspect]
     Dosage: 70 UNK, UNK
     Route: 048
     Dates: start: 20081223
  7. PREDNISONE [Concomitant]
     Indication: ASTHMA
     Dosage: 5 MG, QOD PRN
     Dates: start: 1996
  8. ALBUTEROL [Concomitant]
     Indication: ASTHMA
     Dosage: 180 MICROGRAM, Q6H PRN
     Route: 055
     Dates: start: 200207, end: 200612
  9. ADVAIR [Concomitant]
     Indication: ASTHMA
     Dosage: INH
     Dates: start: 200602
  10. PROAIR (ALBUTEROL SULFATE) [Concomitant]
     Indication: ASTHMA
     Dosage: 17 G,Q6H  PRN
     Dates: start: 200704
  11. PROVENTIL [Concomitant]
     Dosage: INH
     Dates: start: 200701, end: 200703
  12. SINGULAIR [Concomitant]
     Dosage: 10 MG, QD
     Route: 048
     Dates: start: 200603
  13. SOLU-MEDROL [Concomitant]
     Indication: ASTHMA
     Dosage: IV

REACTIONS (57)
  - Femur fracture [Unknown]
  - Femur fracture [Unknown]
  - Myocardial infarction [Unknown]
  - Hysterectomy [Unknown]
  - Nephrolithiasis [Unknown]
  - Cardiac disorder [Unknown]
  - Coronary artery disease [Unknown]
  - Basal cell carcinoma [Unknown]
  - Haemorrhagic anaemia [Recovered/Resolved]
  - Osteoarthritis [Unknown]
  - Tonsillectomy [Unknown]
  - Bronchospasm [Unknown]
  - Bunion operation [Unknown]
  - Foot operation [Unknown]
  - Joint dislocation [Unknown]
  - Device failure [Unknown]
  - Surgery [Unknown]
  - Limb operation [Unknown]
  - Hip arthroplasty [Unknown]
  - Open reduction of fracture [Unknown]
  - Skin neoplasm excision [Unknown]
  - Renal stone removal [Unknown]
  - Coronary arterial stent insertion [Unknown]
  - Asthma [Recovering/Resolving]
  - Dizziness [Unknown]
  - Bursitis [Unknown]
  - Prescribed overdose [Unknown]
  - Hypertonic bladder [Unknown]
  - Urinary tract infection [Unknown]
  - Tremor [Unknown]
  - Haematuria [Unknown]
  - Osteoporosis [Unknown]
  - Increased tendency to bruise [Unknown]
  - Thyroid disorder [Unknown]
  - Angina pectoris [Unknown]
  - Weight increased [Unknown]
  - Osteopenia [Unknown]
  - Stress urinary incontinence [Unknown]
  - Catheterisation cardiac abnormal [Unknown]
  - Calculus ureteric [Unknown]
  - Hyperlipidaemia [Unknown]
  - Gait disturbance [Unknown]
  - Renal colic [Unknown]
  - Hypertension [Unknown]
  - Medical device removal [Unknown]
  - Myokymia [Unknown]
  - Lymphadenopathy [Unknown]
  - Metatarsus primus varus [Unknown]
  - Foot deformity [Unknown]
  - Arthritis [Unknown]
  - Foot deformity [Unknown]
  - Rectal haemorrhage [Recovered/Resolved]
  - Blood thyroid stimulating hormone decreased [Unknown]
  - Gastrooesophageal reflux disease [Unknown]
  - Drug ineffective [Unknown]
  - Diarrhoea [Recovered/Resolved]
  - Oedema peripheral [Unknown]
